FAERS Safety Report 11337135 (Version 2)
Quarter: 2015Q4

REPORT INFORMATION
  Report Type: Spontaneous
  Country: JP (occurrence: JP)
  Receive Date: 20150804
  Receipt Date: 20151006
  Transmission Date: 20160304
  Serious: Yes (Other)
  Sender: FDA-Public Use
  Company Number: PHJP2015JP012159

PATIENT
  Age: 44 Year
  Sex: Male

DRUGS (1)
  1. CLOZARIL [Suspect]
     Active Substance: CLOZAPINE
     Indication: SCHIZOPHRENIA
     Route: 048
     Dates: start: 20150708, end: 20150714

REACTIONS (4)
  - White blood cell count decreased [Recovered/Resolved]
  - Cellulitis [Recovered/Resolved]
  - Neutrophil count decreased [Unknown]
  - Joint injury [Unknown]

NARRATIVE: CASE EVENT DATE: 20150708
